FAERS Safety Report 12578595 (Version 1)
Quarter: 2016Q3

REPORT INFORMATION
  Report Type: Spontaneous
  Country: RU (occurrence: RU)
  Receive Date: 20160721
  Receipt Date: 20160721
  Transmission Date: 20161109
  Serious: Yes (Hospitalization)
  Sender: FDA-Public Use
  Company Number: RU-PFIZER INC-2016337466

PATIENT
  Sex: Male

DRUGS (2)
  1. DIPHERELINE [Concomitant]
     Indication: PROSTATE CANCER
     Dosage: 11.25 MG, UNK
     Route: 030
  2. SUTENT [Suspect]
     Active Substance: SUNITINIB MALATE
     Indication: METASTATIC RENAL CELL CARCINOMA
     Dosage: 50 MG, CYCLIC: 4 WEEKS INTAKE AND 2 WEEKS OFF
     Route: 048
     Dates: start: 20160505, end: 20160706

REACTIONS (3)
  - Thrombocytopenia [Not Recovered/Not Resolved]
  - Leukopenia [Not Recovered/Not Resolved]
  - Haemorrhagic disorder [Not Recovered/Not Resolved]

NARRATIVE: CASE EVENT DATE: 20160703
